FAERS Safety Report 6102386-9 (Version None)
Quarter: 2009Q1

REPORT INFORMATION
  Report Type: 
  Country: None (occurrence: None)
  Receive Date: 20090304
  Receipt Date: 20090219
  Transmission Date: 20090719
  Serious: Yes (Hospitalization)
  Sender: FDA-Public Use
  Company Number: SE-ROCHE-615608

PATIENT
  Age: 50 Year
  Sex: Female

DRUGS (5)
  1. XELODA [Suspect]
     Route: 048
     Dates: start: 20081201
  2. ELOXATIN [Suspect]
     Route: 042
     Dates: start: 20081201, end: 20090114
  3. CREON [Concomitant]
     Dosage: DRUG NAME: CREON 10000
     Route: 065
  4. NEXIUM [Concomitant]
     Route: 065
  5. ACETAMINOPHEN [Concomitant]
     Route: 065

REACTIONS (1)
  - HAEMOLYTIC ANAEMIA [None]
